FAERS Safety Report 13654113 (Version 2)
Quarter: 2017Q3

REPORT INFORMATION
  Report Type: Report from Study
  Country: US (occurrence: US)
  Receive Date: 20170614
  Receipt Date: 20170711
  Transmission Date: 20171127
  Serious: Yes (Hospitalization)
  Sender: FDA-Public Use
  Company Number: US-VIFOR (INTERNATIONAL) INC.-VIT-2017-05380

PATIENT
  Age: 42 Year
  Sex: Female

DRUGS (15)
  1. SENDIPAR [Concomitant]
  2. GLIPIZIDE. [Concomitant]
     Active Substance: GLIPIZIDE
  3. RENVELA [Concomitant]
     Active Substance: SEVELAMER CARBONATE
  4. LOSARTAN. [Concomitant]
     Active Substance: LOSARTAN
  5. ACETYLSALICYLIC ACID [Concomitant]
     Active Substance: ASPIRIN
  6. BRILINTA [Concomitant]
     Active Substance: TICAGRELOR
  7. DILTIAZEM. [Concomitant]
     Active Substance: DILTIAZEM
  8. ERGOCALCIFEROL. [Concomitant]
     Active Substance: ERGOCALCIFEROL
  9. LOSARTAN POTASSIUM. [Concomitant]
     Active Substance: LOSARTAN POTASSIUM
  10. VELTASSA [Suspect]
     Active Substance: PATIROMER
     Indication: HYPERKALAEMIA
     Route: 048
     Dates: start: 201704
  11. VELTASSA [Suspect]
     Active Substance: PATIROMER
     Route: 048
     Dates: start: 20170513
  12. OMEPRAZOLE. [Concomitant]
     Active Substance: OMEPRAZOLE
  13. PRAVASTATIN. [Concomitant]
     Active Substance: PRAVASTATIN
  14. METOPROLOL. [Concomitant]
     Active Substance: METOPROLOL
  15. COQ10 [Concomitant]
     Active Substance: UBIDECARENONE

REACTIONS (3)
  - Angiogram [Recovered/Resolved]
  - Stent placement [Recovered/Resolved]
  - Chest pain [Not Recovered/Not Resolved]

NARRATIVE: CASE EVENT DATE: 2017
